FAERS Safety Report 9511939 (Version 1)
Quarter: 2013Q1

REPORT INFORMATION
  Report Type: Spontaneous
  Country: US (occurrence: None)
  Receive Date: 20130305
  Receipt Date: 20130305
  Transmission Date: 20140127
  Serious: Yes (Other)
  Sender: FDA-Public Use
  Company Number: 163-21880-12101917

PATIENT
  Age: 48 Year
  Sex: Female

DRUGS (4)
  1. REVLIMID [Suspect]
     Indication: PLASMA CELL MYELOMA
     Dosage: 25 MG, 21 IN 21 D, PO
     Route: 048
     Dates: start: 20120627
  2. DEXAMETHASONE (DEXAMETHASONE) (UNKNOWN) [Concomitant]
  3. METFORMIN HCL (METFORMIN HYDROCHLORIDE) (UNKNOWN) [Concomitant]
  4. VELCADE [Concomitant]

REACTIONS (3)
  - Face oedema [None]
  - Rash [None]
  - Dizziness [None]
